FAERS Safety Report 20628122 (Version 1)
Quarter: 2022Q1

REPORT INFORMATION
  Report Type: Report from Study
  Country: IT (occurrence: None)
  Receive Date: 20220323
  Receipt Date: 20220323
  Transmission Date: 20220423
  Serious: Yes (Life-Threatening, Hospitalization)
  Sender: FDA-Public Use
  Company Number: IT-ROCHE-3053424

PATIENT
  Age: 39 Year
  Sex: Male

DRUGS (13)
  1. IBRUTINIB [Suspect]
     Active Substance: IBRUTINIB
     Indication: Marginal zone lymphoma
     Dosage: (DAY 1 - 56)?LAST DOSE BEFORE THE SAE WAS ADMINISTERED ON 16 FEBRUARY 2022
     Route: 048
     Dates: start: 20220110, end: 20220216
  2. RITUXIMAB [Suspect]
     Active Substance: RITUXIMAB
     Indication: Marginal zone lymphoma
     Dosage: (DAY 1)?1400 MG (DAY 8, 15, 22 OF CYCLE 1),SUBCUTANEOUS?THE LAST DOSE BEFORE THE SAE WAS GIVEN ON 31
     Route: 042
     Dates: start: 20220110, end: 20220131
  3. LANSOPRAZOLE [Concomitant]
     Active Substance: LANSOPRAZOLE
     Route: 048
     Dates: start: 20220220
  4. LINEZOLID [Concomitant]
     Active Substance: LINEZOLID
     Route: 048
     Dates: start: 20220223, end: 20220301
  5. AMIKACIN SULFATE [Concomitant]
     Active Substance: AMIKACIN SULFATE
     Route: 042
     Dates: start: 20220219, end: 20220221
  6. PIPERACILLIN SODIUM\TAZOBACTAM SODIUM [Concomitant]
     Active Substance: PIPERACILLIN SODIUM\TAZOBACTAM SODIUM
     Route: 042
     Dates: start: 20220223, end: 20220301
  7. ACETAMINOPHEN [Concomitant]
     Active Substance: ACETAMINOPHEN
     Route: 042
     Dates: start: 20220220, end: 20220307
  8. ACETAMINOPHEN [Concomitant]
     Active Substance: ACETAMINOPHEN
     Dosage: AS NEEDED,
     Dates: start: 20220110
  9. KETOPROFEN [Concomitant]
     Active Substance: KETOPROFEN
     Dosage: AS NEEDED
     Dates: start: 20220221, end: 20220223
  10. RAMIPRIL [Concomitant]
     Active Substance: RAMIPRIL
  11. ACETAMINOPHEN\CODEINE PHOSPHATE [Concomitant]
     Active Substance: ACETAMINOPHEN\CODEINE PHOSPHATE
     Indication: Pain
     Dosage: 500 MG/30 MG AS NEEDED
     Dates: start: 20211209
  12. VALACYCLOVIR [Concomitant]
     Active Substance: VALACYCLOVIR HYDROCHLORIDE
     Dates: start: 20211228
  13. SULFAMETHOXAZOLE AND TRIMETHOPRIM [Concomitant]
     Active Substance: SULFAMETHOXAZOLE\TRIMETHOPRIM
     Dosage: 160 MG/ 800 MG TWICE A DAY TWICE A WEEK
     Dates: start: 20211228

REACTIONS (1)
  - Haemophagocytic lymphohistiocytosis [Recovered/Resolved]

NARRATIVE: CASE EVENT DATE: 20220218
